FAERS Safety Report 19192968 (Version 1)
Quarter: 2021Q2

REPORT INFORMATION
  Report Type: Spontaneous
  Country: US (occurrence: US)
  Receive Date: 20210429
  Receipt Date: 20210429
  Transmission Date: 20210717
  Serious: No
  Sender: FDA-Public Use
  Company Number: US-DRREDDYS-USA/USA/21/0134870

PATIENT
  Age: 15 Year
  Sex: Female

DRUGS (1)
  1. ZENATANE [Suspect]
     Active Substance: ISOTRETINOIN
     Indication: PRODUCT USED FOR UNKNOWN INDICATION
     Dosage: RMA ISSUE DATE:11/11/2020 7:06:16 PM,12/19/2020 4:11:21 PM,1/20/2021 4:44:06 PM,3/3/2021 4:35:48 PM
     Route: 048

REACTIONS (1)
  - Product administration interrupted [Unknown]
